FAERS Safety Report 7969150-7 (Version None)
Quarter: 2011Q4

REPORT INFORMATION
  Report Type: 
  Country: None (occurrence: None)
  Receive Date: 20111209
  Receipt Date: 20111102
  Transmission Date: 20120403
  Serious: Yes (Hospitalization)
  Sender: FDA-Public Use
  Company Number: US-ROCHE-1020372

PATIENT
  Sex: Female
  Weight: 136.2 kg

DRUGS (9)
  1. PLAVIX [Concomitant]
  2. OMALIZUMAB [Suspect]
     Indication: ASTHMA
     Route: 058
     Dates: start: 20100326
  3. HYDRALAZINE HCL [Concomitant]
  4. SINGULAIR [Concomitant]
  5. ALBUTEROL [Concomitant]
  6. ALBUTEROL [Concomitant]
  7. LABETALOL HCL [Concomitant]
  8. ADVAIR DISKUS 100/50 [Concomitant]
  9. CLARINEX [Concomitant]

REACTIONS (1)
  - CARDIAC FAILURE CONGESTIVE [None]
